FAERS Safety Report 5092694-5 (Version None)
Quarter: 2006Q3

REPORT INFORMATION
  Report Type: 
  Country: None (occurrence: None)
  Receive Date: 20060825
  Receipt Date: 20060820
  Transmission Date: 20061208
  Serious: Yes (Other)
  Sender: FDA-Public Use
  Company Number: 2006100384

PATIENT
  Age: 12 Year
  Sex: Female

DRUGS (1)
  1. LISTERINE (MENTHOL, METHYL SALICYLATE, EUCALYPTOL, THYMOL) [Suspect]
     Indication: POISONING
     Dosage: 1/2 A BOTTLE ONCE, ORAL
     Route: 048
     Dates: start: 20060820, end: 20060820

REACTIONS (2)
  - ALCOHOL POISONING [None]
  - INTENTIONAL DRUG MISUSE [None]
